FAERS Safety Report 19149751 (Version 1)
Quarter: 2021Q2

REPORT INFORMATION
  Report Type: Spontaneous
  Country: JP (occurrence: JP)
  Receive Date: 20210417
  Receipt Date: 20210417
  Transmission Date: 20210717
  Serious: Yes (Other)
  Sender: FDA-Public Use
  Company Number: JP-ROCHE-2811431

PATIENT
  Age: 81 Year
  Sex: Male

DRUGS (1)
  1. TECENTRIQ [Suspect]
     Active Substance: ATEZOLIZUMAB
     Indication: LUNG NEOPLASM MALIGNANT
     Dosage: IIN /SEP/2019, MOST RECENT DOSE
     Route: 041
     Dates: start: 201903

REACTIONS (2)
  - Renal impairment [Unknown]
  - Hypothyroidism [Unknown]
